FAERS Safety Report 19470200 (Version 1)
Quarter: 2021Q2

REPORT INFORMATION
  Report Type: Spontaneous
  Country: US (occurrence: US)
  Receive Date: 20210628
  Receipt Date: 20210628
  Transmission Date: 20210717
  Serious: No
  Sender: FDA-Public Use
  Company Number: US-GLAXOSMITHKLINE-2020350139

PATIENT
  Sex: Male
  Weight: 122.47 kg

DRUGS (1)
  1. IBUPROFEN. [Suspect]
     Active Substance: IBUPROFEN
     Dosage: 600 MG, EVERY 4 HRS (TAKING 3 IBUPROFEN 200 MG EVERY 4 HOURS)

REACTIONS (1)
  - Overdose [Unknown]
